FAERS Safety Report 5026391-9 (Version None)
Quarter: 2006Q2

REPORT INFORMATION
  Report Type: 
  Country: None (occurrence: None)
  Receive Date: 20060615
  Receipt Date: 20060607
  Transmission Date: 20061013
  Serious: Yes (Other)
  Sender: FDA-Public Use
  Company Number: PHNU2006DE02202

PATIENT
  Sex: Female

DRUGS (1)
  1. FORMOTEROL T24209+AEROCFCFR [Suspect]

REACTIONS (1)
  - CARDIAC FLUTTER [None]
